FAERS Safety Report 4292118-1 (Version None)
Quarter: 2004Q1

REPORT INFORMATION
  Report Type: 
  Country: None (occurrence: None)
  Receive Date: 20040211
  Receipt Date: 20031209
  Transmission Date: 20041129
  Serious: No
  Sender: FDA-Public Use
  Company Number: US-GLAXOSMITHKLINE-A0442559A

PATIENT
  Age: 42 Year
  Sex: Female

DRUGS (6)
  1. LAMICTAL [Suspect]
     Indication: EPILEPSY
     Dosage: 200MG TWICE PER DAY
     Route: 048
     Dates: start: 20030201
  2. CALCIUM [Concomitant]
  3. B12 [Concomitant]
  4. MULTI-VITAMIN [Concomitant]
  5. EVENING PRIMROSE [Concomitant]
  6. MAGNESIUM [Concomitant]

REACTIONS (1)
  - RASH [None]
